FAERS Safety Report 15339170 (Version 2)
Quarter: 2018Q4

REPORT INFORMATION
  Report Type: Spontaneous
  Country: US (occurrence: US)
  Receive Date: 20180831
  Receipt Date: 20181108
  Transmission Date: 20190204
  Serious: Yes (Life-Threatening, Other)
  Sender: FDA-Public Use
  Company Number: US-MYLANLABS-2018M1064080

PATIENT
  Age: 48 Year
  Sex: Female
  Weight: 154.2 kg

DRUGS (2)
  1. EPIPEN [Suspect]
     Active Substance: EPINEPHRINE
     Indication: DRUG HYPERSENSITIVITY
     Dosage: 0.3 MG, UNK
     Dates: start: 20180705, end: 20180705
  2. BENADRYL [Suspect]
     Active Substance: DIPHENHYDRAMINE HYDROCHLORIDE
     Indication: RUBBER SENSITIVITY
     Dosage: 50 MG, UNK
     Dates: start: 20180705

REACTIONS (2)
  - Drug hypersensitivity [Recovered/Resolved]
  - Migraine [Not Recovered/Not Resolved]

NARRATIVE: CASE EVENT DATE: 201807
